FAERS Safety Report 12708193 (Version 2)
Quarter: 2017Q1

REPORT INFORMATION
  Report Type: Spontaneous
  Country: US (occurrence: US)
  Receive Date: 20160901
  Receipt Date: 20170221
  Transmission Date: 20170428
  Serious: Yes (Hospitalization, Other)
  Sender: FDA-Public Use
  Company Number: US-BAYER-2016-169926

PATIENT
  Age: 32 Year
  Sex: Female

DRUGS (3)
  1. FUROSEMIDE. [Concomitant]
     Active Substance: FUROSEMIDE
  2. CIPRO [Concomitant]
     Active Substance: CIPROFLOXACIN HYDROCHLORIDE
  3. MIRENA [Suspect]
     Active Substance: LEVONORGESTREL
     Indication: CONTRACEPTION
     Dosage: 20 MCG/24HR, CONT
     Route: 015
     Dates: start: 20130402, end: 20150709

REACTIONS (7)
  - Headache [None]
  - Blindness [None]
  - Amnesia [None]
  - Dizziness [None]
  - Benign intracranial hypertension [None]
  - Nausea [None]
  - Papilloedema [None]

NARRATIVE: CASE EVENT DATE: 201308
